FAERS Safety Report 24257729 (Version 2)
Quarter: 2024Q4

REPORT INFORMATION
  Report Type: Report from Study
  Country: US (occurrence: US)
  Receive Date: 20240828
  Receipt Date: 20241011
  Transmission Date: 20250114
  Serious: Yes (Hospitalization)
  Sender: BIOGEN
  Company Number: US-BIOGEN-2024BI01279486

PATIENT
  Age: 39 Year
  Sex: Female

DRUGS (8)
  1. VUMERITY [Suspect]
     Active Substance: DIROXIMEL FUMARATE
     Indication: Multiple sclerosis
     Route: 050
     Dates: start: 20240317
  2. VUMERITY [Suspect]
     Active Substance: DIROXIMEL FUMARATE
     Route: 050
     Dates: start: 20240328
  3. ALBUTEROL [Concomitant]
     Active Substance: ALBUTEROL
     Indication: Product used for unknown indication
     Route: 050
     Dates: start: 20201114
  4. ELAVIL [Concomitant]
     Active Substance: AMITRIPTYLINE HYDROCHLORIDE
     Indication: Product used for unknown indication
     Route: 050
     Dates: start: 20210924
  5. LIDOCAINE PATCH [Concomitant]
     Active Substance: LIDOCAINE
     Indication: Product used for unknown indication
     Dosage: APPLY 1 PATCH TOPICALLY IN THE MORNING. LEAVE ON FOR 12 HOURS, THEN REMOVE AND DISCARD. - TOPICAL...
     Route: 050
     Dates: start: 20240105
  6. ROBAXIN [Concomitant]
     Active Substance: METHOCARBAMOL
     Indication: Product used for unknown indication
     Dosage: TAKE 1 TABLET (500 MG) BY MOUTH IN THE MORNING AND AT BEDTIME FOR 15 DAYS. - ORAL
     Route: 050
     Dates: start: 20240913
  7. LYRICA [Concomitant]
     Active Substance: PREGABALIN
     Indication: Product used for unknown indication
     Dosage: TAKE 1 CAPSULE (50 MG) BY MOUTH IN THE MORNING, AFTERNOON, AND EVENING. - ORAL
     Route: 050
     Dates: start: 20240207, end: 20240913
  8. SEREVENT DISKUS [Concomitant]
     Active Substance: SALMETEROL XINAFOATE
     Indication: Product used for unknown indication
     Route: 050
     Dates: start: 20220309

REACTIONS (3)
  - COVID-19 [Recovered/Resolved]
  - Multiple sclerosis pseudo relapse [Unknown]
  - Anorectal cellulitis [Unknown]

NARRATIVE: CASE EVENT DATE: 20240801
